FAERS Safety Report 10162190 (Version 2)
Quarter: 2020Q3

REPORT INFORMATION
  Report Type: Other
  Country: CA (occurrence: CA)
  Receive Date: 20140509
  Receipt Date: 20200817
  Transmission Date: 20201102
  Serious: Yes (Other)
  Sender: FDA-Public Use
  Company Number: CA-ROCHE-1398198

PATIENT
  Sex: Female

DRUGS (16)
  1. RITUXAN [Suspect]
     Active Substance: RITUXIMAB
     Indication: RHEUMATOID ARTHRITIS
     Dosage: FREQUENCY:  DAY 1 AND DAY 15. NO PIRS RECEIVED POST 09?DEC?2016
     Route: 042
     Dates: start: 20081016
  2. METHYLPREDNISOLONE. [Concomitant]
     Active Substance: METHYLPREDNISOLONE
     Indication: PREMEDICATION
     Route: 042
     Dates: start: 20091123
  3. ANTARA [Concomitant]
     Active Substance: FENOFIBRATE
  4. BENADRYL [Concomitant]
     Active Substance: DIPHENHYDRAMINE HYDROCHLORIDE
     Indication: PREMEDICATION
     Route: 048
     Dates: start: 20081016
  5. ACETAMINOPHEN. [Concomitant]
     Active Substance: ACETAMINOPHEN
     Indication: PREMEDICATION
     Route: 048
     Dates: start: 20091123
  6. TYLENOL [Concomitant]
     Active Substance: ACETAMINOPHEN
  7. DIPHENHYDRAMINE HCL [Concomitant]
     Active Substance: DIPHENHYDRAMINE HYDROCHLORIDE
     Indication: PREMEDICATION
     Route: 048
     Dates: start: 20091123
  8. ACETAMINOPHEN. [Concomitant]
     Active Substance: ACETAMINOPHEN
     Route: 048
     Dates: start: 20081016
  9. FENOFIBRATE. [Concomitant]
     Active Substance: FENOFIBRATE
  10. METHYLPREDNISOLONE. [Concomitant]
     Active Substance: METHYLPREDNISOLONE
     Route: 042
     Dates: start: 20091016
  11. D?TABS [Concomitant]
     Active Substance: CHOLECALCIFEROL
  12. RITUXAN [Suspect]
     Active Substance: RITUXIMAB
     Dosage: FREQUENCY:  DAY 1 AND DAY 15?MOST RECENT INFUSION WAS ON 05/AUG/2019
     Route: 042
     Dates: start: 20091123
  13. METHOTREXATE. [Concomitant]
     Active Substance: METHOTREXATE
     Route: 048
  14. FOLIC ACID. [Concomitant]
     Active Substance: FOLIC ACID
  15. TAMOXIFEN [Concomitant]
     Active Substance: TAMOXIFEN
  16. PANTOLOC [Concomitant]
     Active Substance: PANTOPRAZOLE SODIUM

REACTIONS (1)
  - Tenosynovitis [Unknown]
